FAERS Safety Report 7478058-5 (Version None)
Quarter: 2011Q2

REPORT INFORMATION
  Report Type: 
  Country: None (occurrence: None)
  Receive Date: 20110511
  Receipt Date: 20110511
  Transmission Date: 20111010
  Serious: Yes (Hospitalization)
  Sender: FDA-Public Use
  Company Number: None

PATIENT
  Age: 57 Year
  Sex: Female
  Weight: 74.8435 kg

DRUGS (1)
  1. LEXAPRO [Suspect]
     Indication: ANXIETY
     Dosage: 5 MG TO BE INCREASED TO 10 MG 1 PER DAY PO
     Route: 048
     Dates: start: 20110121, end: 20110124

REACTIONS (4)
  - PANIC ATTACK [None]
  - BLOOD PRESSURE INCREASED [None]
  - PSYCHOTIC DISORDER [None]
  - HEART RATE INCREASED [None]
